FAERS Safety Report 15255995 (Version 1)
Quarter: 2018Q3

REPORT INFORMATION
  Report Type: Spontaneous
  Country: US (occurrence: US)
  Receive Date: 20180808
  Receipt Date: 20180808
  Transmission Date: 20181010
  Serious: No
  Sender: FDA-Public Use
  Company Number: US-ASTRAZENECA-2018SE88997

PATIENT
  Age: 727 Month
  Sex: Female
  Weight: 58.5 kg

DRUGS (1)
  1. ROSUVASTATIN CALCIUM. [Suspect]
     Active Substance: ROSUVASTATIN CALCIUM
     Indication: BLOOD CHOLESTEROL INCREASED
     Dosage: 5 MG DAILY IN THE EVENING
     Route: 048
     Dates: start: 201804, end: 201806

REACTIONS (2)
  - Intentional product misuse [Unknown]
  - Constipation [Unknown]

NARRATIVE: CASE EVENT DATE: 201805
